FAERS Safety Report 17010272 (Version 5)
Quarter: 2020Q4

REPORT INFORMATION
  Report Type: Spontaneous
  Country: US (occurrence: US)
  Receive Date: 20191108
  Receipt Date: 20201215
  Transmission Date: 20210113
  Serious: No
  Sender: FDA-Public Use
  Company Number: US-PFIZER INC-2019484344

PATIENT
  Age: 79 Year
  Sex: Female
  Weight: 97.98 kg

DRUGS (2)
  1. XELJANZ XR [Suspect]
     Active Substance: TOFACITINIB CITRATE
     Dosage: 11 MG, ALTERNATE DAY
     Route: 048
     Dates: start: 20201211
  2. XELJANZ XR [Suspect]
     Active Substance: TOFACITINIB CITRATE
     Indication: RHEUMATOID ARTHRITIS
     Dosage: 11 MG, DAILY
     Route: 048

REACTIONS (9)
  - Folliculitis [Unknown]
  - Genital herpes [Unknown]
  - Skin irritation [Unknown]
  - Fatigue [Unknown]
  - Hypoacusis [Unknown]
  - Weight increased [Unknown]
  - Off label use [Unknown]
  - Seborrhoeic dermatitis [Unknown]
  - Pain [Unknown]

NARRATIVE: CASE EVENT DATE: 2017
